FAERS Safety Report 5656006-8 (Version None)
Quarter: 2008Q1

REPORT INFORMATION
  Report Type: 
  Country: None (occurrence: None)
  Receive Date: 20080307
  Receipt Date: 20080225
  Transmission Date: 20080703
  Serious: Yes (Other)
  Sender: FDA-Public Use
  Company Number: CN-PFIZER INC-2008018474

PATIENT
  Age: 70 Year

DRUGS (2)
  1. ZYVOX [Suspect]
     Indication: STAPHYLOCOCCAL INFECTION
     Route: 042
  2. VANCOMYCIN [Concomitant]
     Dates: start: 20080101, end: 20080101

REACTIONS (3)
  - DRUG ADMINISTRATION ERROR [None]
  - LETHARGY [None]
  - MANIA [None]
